FAERS Safety Report 7319126-8 (Version None)
Quarter: 2011Q1

REPORT INFORMATION
  Report Type: 
  Country: None (occurrence: None)
  Receive Date: 20110228
  Receipt Date: 20110215
  Transmission Date: 20110831
  Serious: Yes (Hospitalization, Other)
  Sender: FDA-Public Use
  Company Number: PHHY2011JP12917

PATIENT
  Sex: Female

DRUGS (8)
  1. AFINITOR [Suspect]
     Indication: METASTATIC RENAL CELL CARCINOMA
     Dosage: 10 MG,DAILY
     Route: 048
     Dates: start: 20100827, end: 20101203
  2. SUNITINIB MALATE [Concomitant]
     Indication: METASTATIC RENAL CELL CARCINOMA
     Dosage: 3 DF, UNK
     Route: 048
     Dates: start: 20090803
  3. SUNITINIB MALATE [Concomitant]
     Dosage: 3 DF, UNK
     Route: 048
     Dates: end: 20100826
  4. DECADRON [Concomitant]
     Indication: METASTATIC RENAL CELL CARCINOMA
     Dosage: 1 MG, UNK
     Route: 048
     Dates: start: 20090905, end: 20101202
  5. SORAFENIB TOSILATE [Concomitant]
     Indication: METASTATIC RENAL CELL CARCINOMA
     Dosage: 2 DF, UNK
     Route: 048
     Dates: start: 20100513, end: 20100715
  6. GASPORT [Concomitant]
     Indication: METASTATIC RENAL CELL CARCINOMA
     Dosage: 40 MG, UNK
     Route: 048
     Dates: start: 20090905, end: 20101110
  7. LASIX [Concomitant]
     Indication: METASTATIC RENAL CELL CARCINOMA
     Dosage: 20 MG, UNK
     Route: 048
     Dates: start: 20090827
  8. INTERFERON ALFA [Concomitant]
     Indication: METASTATIC RENAL CELL CARCINOMA
     Dosage: 6000000 IU, UNK
     Dates: start: 20090410, end: 20090802

REACTIONS (11)
  - RESPIRATORY DISTRESS [None]
  - HAEMOGLOBIN DECREASED [None]
  - ALANINE AMINOTRANSFERASE INCREASED [None]
  - HAEMATOCRIT DECREASED [None]
  - SPINAL FRACTURE [None]
  - DYSPNOEA [None]
  - BLOOD ALKALINE PHOSPHATASE INCREASED [None]
  - INTERSTITIAL LUNG DISEASE [None]
  - BLOOD LACTATE DEHYDROGENASE INCREASED [None]
  - NEOPLASM MALIGNANT [None]
  - GAMMA-GLUTAMYLTRANSFERASE INCREASED [None]
